FAERS Safety Report 22347964 (Version 1)
Quarter: 2023Q2

REPORT INFORMATION
  Report Type: Spontaneous
  Country: IT (occurrence: IT)
  Receive Date: 20230522
  Receipt Date: 20230522
  Transmission Date: 20230722
  Serious: Yes (Hospitalization, Other)
  Sender: FDA-Public Use
  Company Number: IT-MINISAL02-919549

PATIENT
  Age: 36 Year
  Sex: Female
  Weight: 83 kg

DRUGS (7)
  1. AMIODARONE [Interacting]
     Active Substance: AMIODARONE
     Indication: Cardiac failure
     Dosage: 200 MILLIGRAM, ONCE A DAY
     Route: 048
     Dates: start: 2013, end: 20230315
  2. EPCLUSA [Suspect]
     Active Substance: SOFOSBUVIR\VELPATASVIR
     Indication: Chronic hepatitis C
     Dosage: 500 MILLIGRAM, ONCE A DAY (400/100 MG/DIE)
     Route: 048
     Dates: start: 20230321, end: 20230402
  3. BISOPROLOL FUMARATE [Concomitant]
     Active Substance: BISOPROLOL FUMARATE
     Indication: Cardiac failure
     Dosage: 5 MG + 2.5MG /DIE
     Route: 048
     Dates: end: 20230406
  4. ENTRESTO [Concomitant]
     Active Substance: SACUBITRIL\VALSARTAN
     Indication: Cardiac failure
     Dosage: 24/26MG X 2 /DIE
     Route: 048
     Dates: end: 20230406
  5. LEVOTHYROXINE SODIUM [Concomitant]
     Active Substance: LEVOTHYROXINE SODIUM
     Indication: Hypothyroidism
     Dosage: 75 MICROGRAM, ONCE A DAY
     Route: 065
  6. LASIX [Concomitant]
     Active Substance: FUROSEMIDE
     Indication: Cardiac failure
     Dosage: 25 MILLIGRAM, ONCE A DAY
     Route: 048
  7. PANTOPRAZOLE SODIUM [Concomitant]
     Active Substance: PANTOPRAZOLE SODIUM
     Indication: Product used for unknown indication
     Dosage: 20 MILLIGRAM, ONCE A DAY
     Route: 065

REACTIONS (2)
  - Cardiac failure [Recovered/Resolved]
  - Renal failure [Recovered/Resolved]

NARRATIVE: CASE EVENT DATE: 20230329
